FAERS Safety Report 7222008-3 (Version None)
Quarter: 2011Q1

REPORT INFORMATION
  Report Type: 
  Country: None (occurrence: None)
  Receive Date: 20110112
  Receipt Date: 20101231
  Transmission Date: 20110831
  Serious: Yes (Hospitalization)
  Sender: FDA-Public Use
  Company Number: FR-ELI_LILLY_AND_COMPANY-FR201012006690

PATIENT
  Sex: Female

DRUGS (11)
  1. INSPRA [Concomitant]
     Dosage: 25 MG, UNKNOWN
     Route: 048
     Dates: start: 20100902
  2. TAREG [Concomitant]
     Dosage: 10 MG, 2/D
     Route: 048
     Dates: start: 20100904
  3. PLAVIX [Concomitant]
     Dosage: UNK, LOADING DOSE
     Route: 065
     Dates: start: 20100829
  4. EFFIENT [Suspect]
     Dosage: 10 MG, DAILY (1/D)
     Route: 048
     Dates: start: 20100829, end: 20100907
  5. KARDEGIC [Concomitant]
     Dosage: 75 MG, DAILY (1/D)
     Route: 048
     Dates: start: 20100829
  6. TRIATEC [Concomitant]
     Dosage: UNK, UNKNOWN
     Route: 065
     Dates: start: 20100829
  7. HEPARIN CALCIUM [Concomitant]
     Dosage: 20000 IU, UNKNOWN
     Route: 065
     Dates: start: 20100829
  8. TAHOR [Concomitant]
     Dosage: 80 MG, DAILY (1/D)
     Route: 048
     Dates: start: 20100829
  9. PERINDOPRIL ERBUMINE [Concomitant]
     Dosage: 10 MG, 2/D
     Route: 048
     Dates: start: 20100904
  10. INIPOMP [Concomitant]
     Dosage: 20 MG, UNKNOWN
     Route: 048
     Dates: start: 20100830
  11. TAREG [Concomitant]
     Dosage: 80 MG, DAILY (1/D)
     Route: 065
     Dates: start: 20100904

REACTIONS (2)
  - HAEMOTHORAX [None]
  - GASTRIC ULCER HAEMORRHAGE [None]
